FAERS Safety Report 4285739-3 (Version None)
Quarter: 2004Q1

REPORT INFORMATION
  Report Type: 
  Country: None (occurrence: None)
  Receive Date: 20040205
  Receipt Date: 20040127
  Transmission Date: 20041129
  Serious: Yes (Hospitalization)
  Sender: FDA-Public Use
  Company Number: US-BRISTOL-MYERS SQUIBB COMPANY-12488474

PATIENT
  Age: 68 Year
  Sex: Female
  Weight: 27 kg

DRUGS (14)
  1. CISPLATIN [Suspect]
     Indication: LUNG NEOPLASM MALIGNANT
     Route: 042
     Dates: start: 20031201, end: 20040112
  2. NAVELBINE [Suspect]
     Indication: LUNG NEOPLASM MALIGNANT
     Route: 042
     Dates: start: 20031201, end: 20040112
  3. ALOXIPRIN [Concomitant]
     Route: 042
  4. DECADRON [Concomitant]
     Route: 042
  5. KYTRIL [Concomitant]
     Route: 042
  6. MANNITOL [Concomitant]
     Route: 042
  7. LASIX [Concomitant]
  8. ATIVAN [Concomitant]
     Route: 042
  9. RESTORIL [Concomitant]
     Dosage: AT BEDTIME
  10. K-DUR 10 [Concomitant]
  11. LOVENOX [Concomitant]
  12. ROXANOL [Concomitant]
  13. MS CONTIN [Concomitant]
  14. DURAGESIC [Concomitant]

REACTIONS (3)
  - APHASIA [None]
  - BLINDNESS [None]
  - LEUKOENCEPHALOPATHY [None]
